FAERS Safety Report 5101891-1 (Version None)
Quarter: 2006Q3

REPORT INFORMATION
  Report Type: 
  Country: None (occurrence: None)
  Receive Date: 20060907
  Receipt Date: 20060821
  Transmission Date: 20061208
  Serious: Yes (Other)
  Sender: FDA-Public Use
  Company Number: US200608004264

PATIENT
  Age: 60 Year
  Sex: Female
  Weight: 61 kg

DRUGS (3)
  1. GEMZAR [Suspect]
     Indication: LUNG CARCINOMA CELL TYPE UNSPECIFIED STAGE IV
     Dosage: 1700 MG, OTHER, INTRAVENOUS
     Route: 042
  2. CARBOPLATIN [Concomitant]
  3. LOVENOX [Concomitant]

REACTIONS (2)
  - THROMBOCYTOPENIA [None]
  - THROMBOSIS [None]
